FAERS Safety Report 12386721 (Version 1)
Quarter: 2016Q2

REPORT INFORMATION
  Report Type: Spontaneous
  Country: CN (occurrence: CN)
  Receive Date: 20160519
  Receipt Date: 20160519
  Transmission Date: 20160815
  Serious: Yes (Other)
  Sender: FDA-Public Use
  Company Number: CN-009507513-1605CHN009551

PATIENT
  Age: 48 Year
  Sex: Female

DRUGS (1)
  1. MARVELON [Suspect]
     Active Substance: DESOGESTREL\ETHINYL ESTRADIOL
     Route: 048

REACTIONS (7)
  - Menstruation irregular [Unknown]
  - Menstrual disorder [Unknown]
  - Abdominal pain [Unknown]
  - Menopause [Unknown]
  - Uterine haemorrhage [Not Recovered/Not Resolved]
  - Drug prescribing error [Unknown]
  - Uterine leiomyoma [Unknown]
